FAERS Safety Report 21199890 (Version 2)
Quarter: 2022Q3

REPORT INFORMATION
  Report Type: Spontaneous
  Country: US (occurrence: US)
  Receive Date: 20220811
  Receipt Date: 20220906
  Transmission Date: 20221027
  Serious: Yes (Death)
  Sender: FDA-Public Use
  Company Number: US-TEVA-2022-US-2062761

PATIENT
  Age: 29 Year
  Sex: Female

DRUGS (3)
  1. DEXAMETHASONE [Suspect]
     Active Substance: DEXAMETHASONE
     Indication: Gliomatosis cerebri
     Route: 065
  2. TEMODAR [Suspect]
     Active Substance: TEMOZOLOMIDE
     Indication: Gliomatosis cerebri
     Route: 065
  3. AVASTIN [Suspect]
     Active Substance: BEVACIZUMAB
     Indication: Gliomatosis cerebri
     Route: 065

REACTIONS (1)
  - Drug ineffective [Fatal]
